FAERS Safety Report 15348983 (Version 1)
Quarter: 2018Q3

REPORT INFORMATION
  Report Type: Spontaneous
  Country: CN (occurrence: CN)
  Receive Date: 20180904
  Receipt Date: 20180904
  Transmission Date: 20181010
  Serious: Yes (Other)
  Sender: FDA-Public Use
  Company Number: CN-BAXTER-2018BAX021851

PATIENT
  Age: 26 Year
  Sex: Female

DRUGS (1)
  1. 20% MANNITOL INJECTION [Suspect]
     Active Substance: MANNITOL
     Indication: PRODUCT USED FOR UNKNOWN INDICATION
     Dosage: 125ML IVGTT Q8H
     Route: 041
     Dates: start: 20170813

REACTIONS (2)
  - Compartment syndrome [Recovering/Resolving]
  - Administration site extravasation [Recovering/Resolving]

NARRATIVE: CASE EVENT DATE: 20170813
